FAERS Safety Report 4462115-1 (Version None)
Quarter: 2004Q3

REPORT INFORMATION
  Report Type: 
  Country: None (occurrence: None)
  Receive Date: 20040924
  Receipt Date: 20040924
  Transmission Date: 20050211
  Serious: No
  Sender: FDA-Public Use
  Company Number: None

PATIENT
  Age: 37 Year
  Sex: Female
  Weight: 68.0396 kg

DRUGS (3)
  1. LUPRON [Suspect]
     Indication: ENDOMETRIOSIS
     Dosage: INJECTION 1 X MO
     Dates: start: 20040326
  2. LUPRON [Suspect]
     Indication: ENDOMETRIOSIS
     Dosage: INJECTION 1 X MO
     Dates: start: 20040423
  3. LUPRON [Suspect]
     Indication: ENDOMETRIOSIS
     Dosage: INJECTION 1 X MO
     Dates: start: 20040524

REACTIONS (6)
  - ARTHRALGIA [None]
  - JOINT STIFFNESS [None]
  - MIGRAINE [None]
  - OEDEMA [None]
  - SENSORY LOSS [None]
  - WEIGHT INCREASED [None]
